FAERS Safety Report 20256149 (Version 1)
Quarter: 2021Q4

REPORT INFORMATION
  Report Type: Spontaneous
  Country: TW (occurrence: None)
  Receive Date: 20211230
  Receipt Date: 20211230
  Transmission Date: 20220303
  Serious: Yes (Death, Other)
  Sender: FDA-Public Use
  Company Number: TW-Merck Healthcare KGaA-9289002

PATIENT
  Age: 76 Year
  Sex: Female

DRUGS (1)
  1. AVELUMAB [Suspect]
     Active Substance: AVELUMAB
     Indication: Bladder transitional cell carcinoma
     Dates: start: 20180420, end: 20181227

REACTIONS (5)
  - Death [Fatal]
  - Disease progression [Unknown]
  - Haematuria [Unknown]
  - Hypothyroidism [Unknown]
  - Cough [Unknown]

NARRATIVE: CASE EVENT DATE: 20200101
